FAERS Safety Report 8757058 (Version 1)
Quarter: 2012Q4

REPORT INFORMATION
  Report Type: 
  Country: US (occurrence: US)
  Receive Date: 20120828
  Receipt Date: 20120828
  Transmission Date: 20130627
  Serious: Yes (Death)
  Sender: FDA-Public Use
  Company Number: US-PFIZER INC-2012207399

PATIENT
  Age: 23 Year
  Sex: Male

DRUGS (1)
  1. VFEND [Suspect]
     Dosage: 200 mg, 2x/day
     Dates: start: 20120730, end: 20120818

REACTIONS (2)
  - Disease progression [Fatal]
  - Drug ineffective [Fatal]
